FAERS Safety Report 6463722-7 (Version None)
Quarter: 2009Q4

REPORT INFORMATION
  Report Type: 
  Country: None (occurrence: None)
  Receive Date: 20091130
  Receipt Date: 20091130
  Transmission Date: 20100525
  Serious: Yes (Hospitalization)
  Sender: FDA-Public Use
  Company Number: None

PATIENT

DRUGS (1)
  1. LISINOPRIL [Suspect]
     Indication: HYPERTENSION
     Dosage: 1 UNITS EVERY DAY PO
     Route: 048
     Dates: start: 20090928, end: 20091010

REACTIONS (2)
  - OBSTRUCTIVE UROPATHY [None]
  - RENAL FAILURE ACUTE [None]
